FAERS Safety Report 7717048-1 (Version None)
Quarter: 2011Q3

REPORT INFORMATION
  Report Type: 
  Country: None (occurrence: None)
  Receive Date: 20110830
  Receipt Date: 20110819
  Transmission Date: 20111222
  Serious: Yes (Other)
  Sender: FDA-Public Use
  Company Number: NL-AMGEN-NLDSP2011043794

PATIENT
  Age: 62 Year
  Sex: Female

DRUGS (1)
  1. ENBREL [Suspect]
     Indication: PRODUCT USED FOR UNKNOWN INDICATION
     Dosage: 50 MG, 2X/WEEK
     Dates: start: 20080926, end: 20110815

REACTIONS (5)
  - ABASIA [None]
  - OEDEMA PERIPHERAL [None]
  - NECK PAIN [None]
  - SKIN BURNING SENSATION [None]
  - BACK PAIN [None]
